FAERS Safety Report 20012591 (Version 3)
Quarter: 2022Q1

REPORT INFORMATION
  Report Type: Report from Study
  Country: US (occurrence: US)
  Receive Date: 20211029
  Receipt Date: 20220331
  Transmission Date: 20220423
  Serious: Yes (Life-Threatening, Hospitalization, Disabling, Other)
  Sender: FDA-Public Use
  Company Number: US-NOVARTISPH-NVSC2021US245661

PATIENT
  Sex: Male
  Weight: 75.8 kg

DRUGS (2)
  1. MEKINIST [Suspect]
     Active Substance: TRAMETINIB DIMETHYL SULFOXIDE
     Indication: Product used for unknown indication
     Dosage: 150 MG, BID
     Route: 048
     Dates: start: 20210917
  2. TAFINLAR [Suspect]
     Active Substance: DABRAFENIB MESYLATE
     Indication: Product used for unknown indication
     Dosage: 2 MG, QD
     Route: 048
     Dates: start: 20210917

REACTIONS (6)
  - Haemorrhagic stroke [Recovered/Resolved with Sequelae]
  - Dysarthria [Unknown]
  - Dysphagia [Unknown]
  - Facial paralysis [Unknown]
  - Hemianaesthesia [Unknown]
  - Neoplasm malignant [Unknown]
